FAERS Safety Report 6142210-1 (Version None)
Quarter: 2009Q2

REPORT INFORMATION
  Report Type: 
  Country: None (occurrence: None)
  Receive Date: 20090403
  Receipt Date: 20071121
  Transmission Date: 20091009
  Serious: Yes (Death, Hospitalization)
  Sender: FDA-Public Use
  Company Number: US-ASTRAZENECA-2006UW23527

PATIENT
  Age: 10969 Day
  Sex: Female
  Weight: 103.4 kg

DRUGS (30)
  1. SEROQUEL [Suspect]
     Indication: DEPRESSION
     Dosage: 25-800 MG
     Route: 048
     Dates: start: 19980107
  2. PROVIGIL [Suspect]
  3. ABILIFY [Concomitant]
  4. GEODON [Concomitant]
  5. HALDOL [Concomitant]
  6. EFFEXOR [Concomitant]
     Dates: start: 20060101
  7. NOVOLIN N [Concomitant]
  8. PEPCID [Concomitant]
  9. DITROPAN [Concomitant]
  10. KEPPRA [Concomitant]
  11. XANAX [Concomitant]
  12. ATROVENT [Concomitant]
  13. NITROSTAT [Concomitant]
  14. DELTASONE [Concomitant]
  15. REGLAN [Concomitant]
  16. DULCOLAX [Concomitant]
  17. CARDIZEM [Concomitant]
  18. MONISTAT [Concomitant]
  19. VALIUM [Concomitant]
  20. SINGULAIR [Concomitant]
  21. AMBIEN [Concomitant]
  22. PROTONIX [Concomitant]
  23. RISPERDAL [Concomitant]
  24. WELLBUTRIN [Concomitant]
  25. LITHIUM CARBONATE [Concomitant]
  26. ZYPREXA [Concomitant]
  27. DEPAKOTE [Concomitant]
  28. REMERON [Concomitant]
  29. PAXIL [Concomitant]
  30. ANAFRANIL [Concomitant]

REACTIONS (33)
  - ACCIDENTAL OVERDOSE [None]
  - ACUTE RESPIRATORY DISTRESS SYNDROME [None]
  - ACUTE RESPIRATORY FAILURE [None]
  - ANXIETY [None]
  - ANXIETY DISORDER DUE TO A GENERAL MEDICAL CONDITION [None]
  - ARTERIOSCLEROSIS [None]
  - ARTHRALGIA [None]
  - ASTHMA [None]
  - BACK PAIN [None]
  - BIPOLAR DISORDER [None]
  - BIPOLAR II DISORDER [None]
  - BREAST ABSCESS [None]
  - BRONCHITIS [None]
  - CHOLECYSTITIS [None]
  - CHRONIC OBSTRUCTIVE PULMONARY DISEASE [None]
  - DIABETES MELLITUS [None]
  - DIARRHOEA [None]
  - DISSOCIATIVE DISORDER [None]
  - DRUG WITHDRAWAL SYNDROME [None]
  - HYPERTENSION [None]
  - MENTAL DISORDER [None]
  - MUSCLE SPASMS [None]
  - OROPHARYNGEAL PAIN [None]
  - OSTEONECROSIS [None]
  - OVERDOSE [None]
  - PANIC ATTACK [None]
  - PEPTIC ULCER [None]
  - PNEUMONIA [None]
  - POST-TRAUMATIC STRESS DISORDER [None]
  - PYREXIA [None]
  - SEPSIS [None]
  - STRESS URINARY INCONTINENCE [None]
  - TEMPERATURE INTOLERANCE [None]
